FAERS Safety Report 14243343 (Version 1)
Quarter: 2017Q4

REPORT INFORMATION
  Report Type: Spontaneous
  Country: US (occurrence: US)
  Receive Date: 20171201
  Receipt Date: 20171201
  Transmission Date: 20180321
  Serious: Yes (Hospitalization, Other)
  Sender: FDA-Public Use
  Company Number: US-WEST-WARD PHARMACEUTICALS CORP.-US-H14001-17-04502

PATIENT
  Age: 23 Year
  Sex: Female

DRUGS (5)
  1. BUPIVACAINE. [Concomitant]
     Active Substance: BUPIVACAINE
     Indication: POSTOPERATIVE ANALGESIA
     Route: 037
  2. BUPIVACAINE. [Concomitant]
     Active Substance: BUPIVACAINE
     Route: 040
  3. BUPRENORPHINE. [Suspect]
     Active Substance: BUPRENORPHINE
     Indication: PRODUCT USED FOR UNKNOWN INDICATION
     Route: 065
  4. KETOROLAC [Concomitant]
     Active Substance: KETOROLAC\KETOROLAC TROMETHAMINE
     Indication: PRODUCT USED FOR UNKNOWN INDICATION
     Route: 042
  5. IBUPROFEN. [Concomitant]
     Active Substance: IBUPROFEN
     Indication: PRODUCT USED FOR UNKNOWN INDICATION
     Route: 048

REACTIONS (5)
  - Maternal exposure during pregnancy [Recovered/Resolved]
  - Hyperaesthesia [Unknown]
  - Muscular weakness [Unknown]
  - Drug abuse [Recovered/Resolved]
  - Procedural pain [Recovered/Resolved]
